FAERS Safety Report 10972965 (Version 1)
Quarter: 2015Q1

REPORT INFORMATION
  Report Type: Spontaneous
  Country: US (occurrence: US)
  Receive Date: 20150331
  Receipt Date: 20150331
  Transmission Date: 20150721
  Serious: Yes (Other)
  Sender: FDA-Public Use
  Company Number: US-UCBSA-2015009157

PATIENT
  Sex: Female

DRUGS (15)
  1. METHOCARBAMOL. [Concomitant]
     Active Substance: METHOCARBAMOL
     Indication: PRODUCT USED FOR UNKNOWN INDICATION
     Dosage: UNK
  2. IMITREX [Concomitant]
     Active Substance: SUMATRIPTAN\SUMATRIPTAN SUCCINATE
     Indication: PRODUCT USED FOR UNKNOWN INDICATION
     Dosage: UNK
  3. XYREM [Suspect]
     Active Substance: SODIUM OXYBATE
     Indication: NARCOLEPSY
     Dosage: 1 G, 2X/DAY (BID)
     Route: 048
     Dates: start: 201310, end: 2013
  4. XYREM [Suspect]
     Active Substance: SODIUM OXYBATE
     Indication: CATAPLEXY
     Dosage: DOSE ADJUSTMENTS
     Route: 048
  5. HYDROCORTISONE. [Concomitant]
     Active Substance: HYDROCORTISONE
     Indication: PRODUCT USED FOR UNKNOWN INDICATION
     Dosage: UNK
     Dates: start: 20140327
  6. XYREM [Suspect]
     Active Substance: SODIUM OXYBATE
     Dosage: 2.75 G, 2X/DAY (BID)
     Route: 048
     Dates: start: 201403
  7. NUVIGIL [Concomitant]
     Active Substance: ARMODAFINIL
     Indication: PRODUCT USED FOR UNKNOWN INDICATION
     Dosage: 150MG
     Dates: start: 20131024
  8. CETIRIZINE HYDROCHLORIDE. [Concomitant]
     Active Substance: CETIRIZINE HYDROCHLORIDE
     Indication: PRODUCT USED FOR UNKNOWN INDICATION
     Dosage: UNK
  9. VITAMIN B12 [Concomitant]
     Active Substance: CYANOCOBALAMIN
     Indication: PRODUCT USED FOR UNKNOWN INDICATION
     Dosage: UNK
  10. PERCOCET [Concomitant]
     Active Substance: ACETAMINOPHEN\OXYCODONE HYDROCHLORIDE
     Indication: PRODUCT USED FOR UNKNOWN INDICATION
     Dosage: 10-325MG
     Dates: start: 20150112
  11. IRON [Concomitant]
     Active Substance: IRON
     Indication: PRODUCT USED FOR UNKNOWN INDICATION
     Dosage: UNK
     Dates: start: 20141031
  12. MAGNESIUM [Concomitant]
     Active Substance: MAGNESIUM
     Indication: PRODUCT USED FOR UNKNOWN INDICATION
     Dosage: UNK
     Dates: start: 20141031
  13. NABUMETONE. [Concomitant]
     Active Substance: NABUMETONE
     Indication: PRODUCT USED FOR UNKNOWN INDICATION
     Dosage: UNK
  14. TRAMADOL [Concomitant]
     Active Substance: TRAMADOL
     Indication: PRODUCT USED FOR UNKNOWN INDICATION
     Dosage: UNK
  15. VITAMIN D [Concomitant]
     Active Substance: CHOLECALCIFEROL
     Indication: PRODUCT USED FOR UNKNOWN INDICATION
     Dosage: UNK

REACTIONS (2)
  - Clonus [Not Recovered/Not Resolved]
  - Hyperreflexia [Not Recovered/Not Resolved]
